FAERS Safety Report 24394788 (Version 1)
Quarter: 2024Q4

REPORT INFORMATION
  Report Type: Spontaneous
  Country: US (occurrence: US)
  Receive Date: 20241004
  Receipt Date: 20241004
  Transmission Date: 20250114
  Serious: Yes (Other)
  Sender: BOEHRINGER INGELHEIM
  Company Number: US-BoehringerIngelheim-2024-BI-015176

PATIENT
  Age: 44 Year
  Sex: Female

DRUGS (6)
  1. SPESOLIMAB [Suspect]
     Active Substance: SPESOLIMAB
     Indication: Generalised pustular psoriasis
     Dosage: ADMINISTERED AS A SINGLE 900 MG DOSE BY IV INFUSION OVER 90 MINUTES.
     Route: 042
     Dates: start: 20220921
  2. SPESOLIMAB [Suspect]
     Active Substance: SPESOLIMAB
     Route: 042
     Dates: start: 20221027
  3. SPESOLIMAB [Suspect]
     Active Substance: SPESOLIMAB
     Route: 042
     Dates: start: 20221129
  4. SPESOLIMAB [Suspect]
     Active Substance: SPESOLIMAB
     Route: 042
     Dates: start: 20230306
  5. SPESOLIMAB [Suspect]
     Active Substance: SPESOLIMAB
     Route: 042
     Dates: start: 20230509
  6. High dose prednisone [Concomitant]
     Indication: Product used for unknown indication
     Dosage: HIGH DOSE
     Route: 048

REACTIONS (2)
  - Generalised pustular psoriasis [Recovered/Resolved]
  - Infusion site extravasation [Unknown]
